FAERS Safety Report 5423600-9 (Version None)
Quarter: 2007Q3

REPORT INFORMATION
  Report Type: 
  Country: None (occurrence: None)
  Receive Date: 20070823
  Receipt Date: 20070810
  Transmission Date: 20080115
  Serious: Yes (Hospitalization)
  Sender: FDA-Public Use
  Company Number: DE-PURDUE-DEU_2007_0003396

PATIENT
  Age: 56 Year
  Sex: Female
  Weight: 106 kg

DRUGS (16)
  1. OXY/NALOX CR TABS VS OXY CR TABS [Suspect]
     Indication: BACK PAIN
     Dosage: 30 MG, DAILY
     Route: 048
     Dates: start: 20070326, end: 20070326
  2. OXY/NALOX CR TABS VS OXY CR TABS [Suspect]
     Dosage: 30 MG, BID
     Route: 048
     Dates: start: 20070327, end: 20070608
  3. AMITRIPTYLINE HCL [Concomitant]
  4. LEVOTHYROXINE SODIUM [Concomitant]
  5. ASPIRIN [Concomitant]
  6. CONCOR PLUS [Concomitant]
  7. PANTOPRAZOLE SODIUM [Concomitant]
  8. LUCOL [Concomitant]
  9. LORZAAR PLUS [Concomitant]
  10. RAMIPRIL [Concomitant]
  11. METFORMIN HCL [Concomitant]
  12. RAMIPRIL [Concomitant]
  13. ASPIRIN [Concomitant]
  14. FURESIS [Concomitant]
  15. SEROQUEL [Concomitant]
  16. TAVOR [Concomitant]

REACTIONS (1)
  - BIPOLAR I DISORDER [None]
